FAERS Safety Report 21696246 (Version 6)
Quarter: 2023Q4

REPORT INFORMATION
  Report Type: Report from Study
  Country: GB (occurrence: GB)
  Receive Date: 20221207
  Receipt Date: 20231201
  Transmission Date: 20240109
  Serious: Yes (Other)
  Sender: FDA-Public Use
  Company Number: GB-SEATTLE GENETICS-2022SGN11445

PATIENT
  Age: 63 Year
  Sex: Female
  Weight: 69 kg

DRUGS (3)
  1. TUCATINIB [Suspect]
     Active Substance: TUCATINIB
     Indication: Breast cancer
     Dosage: 300 MG, BID
     Route: 048
     Dates: start: 20220527, end: 20221116
  2. TRASTUZUMAB [Suspect]
     Active Substance: TRASTUZUMAB
     Indication: Breast cancer
     Dosage: 6 MG/KG, DAY 1 OF EACH CYCLE
     Route: 042
  3. TRASTUZUMAB [Suspect]
     Active Substance: TRASTUZUMAB
     Dosage: 8 MG/KG
     Route: 042
     Dates: start: 20220527, end: 20220527

REACTIONS (1)
  - Cellulitis [Recovered/Resolved with Sequelae]

NARRATIVE: CASE EVENT DATE: 20221020
